FAERS Safety Report 20883387 (Version 1)
Quarter: 2022Q2

REPORT INFORMATION
  Report Type: Spontaneous
  Country: US (occurrence: US)
  Receive Date: 20220527
  Receipt Date: 20220527
  Transmission Date: 20220720
  Serious: Yes (Other)
  Sender: FDA-Public Use
  Company Number: US-MYLANLABS-2022M1038819

PATIENT
  Age: 53 Year
  Sex: Female

DRUGS (8)
  1. FLUOROURACIL [Suspect]
     Active Substance: FLUOROURACIL
     Indication: Colorectal cancer metastatic
     Dosage: UNK, CYCLE(AS A PART OF FOLFOXIRI REGIMEN)
     Route: 042
  2. OXALIPLATIN [Suspect]
     Active Substance: OXALIPLATIN
     Indication: Colorectal cancer metastatic
     Dosage: UNK, CYCLE (AS A PART OF FOLFOXIRI REGIMEN)
     Route: 042
  3. LEUCOVORIN CALCIUM [Suspect]
     Active Substance: LEUCOVORIN CALCIUM
     Indication: Colorectal cancer metastatic
     Dosage: UNK, CYCLE (AS A PART OF FOLFOXIRI REGIMEN)
     Route: 042
  4. BEVACIZUMAB [Suspect]
     Active Substance: BEVACIZUMAB
     Indication: Colorectal cancer metastatic
     Dosage: UNK
     Route: 042
  5. REGORAFENIB [Suspect]
     Active Substance: REGORAFENIB
     Indication: Colorectal cancer metastatic
     Dosage: 80 MILLIGRAM, QD
     Route: 048
  6. REGORAFENIB [Suspect]
     Active Substance: REGORAFENIB
     Dosage: 120 MILLIGRAM, QD
     Route: 048
  7. REGORAFENIB [Suspect]
     Active Substance: REGORAFENIB
     Dosage: 160 MILLIGRAM, QD
     Route: 048
  8. IRINOTECAN [Suspect]
     Active Substance: IRINOTECAN
     Indication: Colorectal cancer metastatic
     Dosage: UNK UNK, CYCLE(AS A PART OF FOLFOXIRI REGIMEN)
     Route: 042

REACTIONS (2)
  - Neuropathy peripheral [Recovered/Resolved]
  - Myelosuppression [Recovered/Resolved]
